FAERS Safety Report 5491328-5 (Version None)
Quarter: 2007Q4

REPORT INFORMATION
  Report Type: 
  Country: None (occurrence: None)
  Receive Date: 20071017
  Receipt Date: 20071002
  Transmission Date: 20080405
  Serious: Yes (Hospitalization)
  Sender: FDA-Public Use
  Company Number: A-CH2007-17986

PATIENT
  Age: 50 Year
  Sex: Female
  Weight: 60 kg

DRUGS (4)
  1. TRACLEER [Suspect]
     Indication: PULMONARY HYPERTENSION
     Dosage: 500 MG, OD, ORAL
     Route: 048
     Dates: start: 20051001, end: 20070820
  2. DIGOXIN [Concomitant]
  3. FUROSEMIDE [Concomitant]
  4. ILOPROST TROMETAMOL (ILOPROST TROMETAMOL) [Concomitant]

REACTIONS (1)
  - HEPATITIS CHOLESTATIC [None]
